FAERS Safety Report 10219277 (Version 1)
Quarter: 2014Q2

REPORT INFORMATION
  Report Type: Spontaneous
  Country: FR (occurrence: None)
  Receive Date: 20140603
  Receipt Date: 20140603
  Transmission Date: 20141212
  Serious: Yes (Hospitalization)
  Sender: FDA-Public Use
  Company Number: IPC201405-000267

PATIENT
  Age: 42 Year
  Sex: Female

DRUGS (1)
  1. ATENOLOL (ATENOLOL) [Suspect]

REACTIONS (1)
  - Acute generalised exanthematous pustulosis [None]
